FAERS Safety Report 13953198 (Version 1)
Quarter: 2017Q3

REPORT INFORMATION
  Report Type: Spontaneous
  Country: DE (occurrence: DE)
  Receive Date: 20170911
  Receipt Date: 20170911
  Transmission Date: 20171128
  Serious: Yes (Death, Life-Threatening, Hospitalization, Other)
  Sender: FDA-Public Use
  Company Number: DE-AUROBINDO-AUR-APL-2017-40065

PATIENT
  Sex: Female

DRUGS (5)
  1. QUETIAPINE PROLONGED-RELEASE TABLET [Suspect]
     Active Substance: QUETIAPINE
     Indication: PRODUCT USED FOR UNKNOWN INDICATION
     Dosage: 29 DF, 200 MG
  2. MIRTAZAPINE 30MG [Suspect]
     Active Substance: MIRTAZAPINE
     Indication: PRODUCT USED FOR UNKNOWN INDICATION
     Dosage: DOSE PER KG BODY WEIGHT: 13 MG/KG
  3. QUETIAPINE PROLONGED-RELEASE TABLET [Suspect]
     Active Substance: QUETIAPINE
     Dosage: ABSOLUTE TOTAL QUANTITY 14.5 GRAM, DOSE 25 MG/KG ,300 MG
  4. IBUPROFEN. [Suspect]
     Active Substance: IBUPROFEN
     Indication: PRODUCT USED FOR UNKNOWN INDICATION
     Dosage: 400 MG
  5. IBUPROFEN. [Suspect]
     Active Substance: IBUPROFEN
     Dosage: 600MG,ABSOLUTE TOTAL QUANTITY 5 GRAM. DOSE; 8 MG/KG BODY WEIGHT

REACTIONS (7)
  - Toxicity to various agents [Unknown]
  - Hypoxia [Unknown]
  - Seizure [Unknown]
  - Acute respiratory distress syndrome [Unknown]
  - Loss of consciousness [Unknown]
  - Hypotension [Unknown]
  - Respiratory failure [Fatal]
